FAERS Safety Report 10219087 (Version 1)
Quarter: 2014Q2

REPORT INFORMATION
  Report Type: Spontaneous
  Country: US (occurrence: US)
  Receive Date: 20140605
  Receipt Date: 20140605
  Transmission Date: 20141212
  Serious: Yes (Other)
  Sender: FDA-Public Use
  Company Number: US-TEVA-486341USA

PATIENT
  Age: 43 Year
  Sex: Female
  Weight: 98.06 kg

DRUGS (3)
  1. PARAGARD 380A [Suspect]
     Indication: CONTRACEPTION
     Route: 015
     Dates: start: 2008, end: 20140523
  2. EXCEDRIN [Concomitant]
     Indication: HEADACHE
  3. IBUPROFEN [Concomitant]
     Indication: HEADACHE

REACTIONS (2)
  - Device breakage [Not Recovered/Not Resolved]
  - Discomfort [Recovered/Resolved]
